FAERS Safety Report 9040320 (Version 1)
Quarter: 2013Q1

REPORT INFORMATION
  Report Type: Report from Study
  Country: US (occurrence: US)
  Receive Date: 20130129
  Receipt Date: 20130129
  Transmission Date: 20140127
  Serious: No
  Sender: FDA-Public Use
  Company Number: US-ABBOTT-12P-163-0889227-00

PATIENT
  Age: 55 None
  Sex: Female

DRUGS (4)
  1. HUMIRA 40 MG/0.8 ML PEN [Suspect]
     Indication: RHEUMATOID ARTHRITIS
     Route: 058
     Dates: start: 20120103
  2. ULTRACET [Concomitant]
     Indication: ARTHRALGIA
  3. MOBIC [Concomitant]
     Indication: RHEUMATOID ARTHRITIS
  4. VICODIN [Concomitant]
     Indication: ARTHRALGIA

REACTIONS (3)
  - Injection site pain [Recovered/Resolved]
  - Blood pressure increased [Unknown]
  - Stress [Not Recovered/Not Resolved]
